FAERS Safety Report 18719034 (Version 1)
Quarter: 2021Q1

REPORT INFORMATION
  Report Type: Spontaneous
  Country: US (occurrence: US)
  Receive Date: 20210108
  Receipt Date: 20210108
  Transmission Date: 20210419
  Serious: No
  Sender: FDA-Public Use
  Company Number: US-NOVOPROD-757607

PATIENT
  Sex: Female

DRUGS (1)
  1. RYBELSUS [Suspect]
     Active Substance: SEMAGLUTIDE
     Indication: WEIGHT DECREASED
     Dosage: UNK
     Route: 048

REACTIONS (3)
  - Product use in unapproved indication [Unknown]
  - Asthenia [Unknown]
  - Constipation [Unknown]
